FAERS Safety Report 4661954-1 (Version None)
Quarter: 2005Q2

REPORT INFORMATION
  Report Type: 
  Country: None (occurrence: None)
  Receive Date: 20050511
  Receipt Date: 20050511
  Transmission Date: 20051028
  Serious: Yes (Hospitalization)
  Sender: FDA-Public Use
  Company Number: None

PATIENT
  Age: 56 Year
  Sex: Male

DRUGS (8)
  1. WARFARIN SODIUM [Suspect]
     Indication: DISEASE RECURRENCE
     Dosage: 6 MG ,QD EXCEPT MON AND FRI
     Dates: start: 20041112
  2. WARFARIN SODIUM [Suspect]
     Indication: PULMONARY EMBOLISM
     Dosage: 6 MG ,QD EXCEPT MON AND FRI
     Dates: start: 20041112
  3. PROCHLORPERAZINE [Concomitant]
  4. RISPERIDONE [Concomitant]
  5. QUETIAPINE [Concomitant]
  6. LORTAB [Concomitant]
  7. FLUOXETINE [Concomitant]
  8. ATORVASTATIN CALCIUM [Concomitant]

REACTIONS (1)
  - INTERNATIONAL NORMALISED RATIO INCREASED [None]
